FAERS Safety Report 6308405-9 (Version None)
Quarter: 2009Q3

REPORT INFORMATION
  Report Type: 
  Country: None (occurrence: None)
  Receive Date: 20090810
  Receipt Date: 20090804
  Transmission Date: 20100115
  Serious: Yes (Life-Threatening)
  Sender: FDA-Public Use
  Company Number: 2009SP017074

PATIENT
  Age: 62 Year
  Sex: Female
  Weight: 73 kg

DRUGS (3)
  1. REMERGIL (MIRTAZAPINE) (MIRTAZAPINE) [Suspect]
     Indication: SLEEP DISORDER THERAPY
     Dosage: 15 MG;QD
  2. LAMOTRIGINE [Suspect]
     Dosage: 25 MG;QD
  3. SERTRALINE HCL [Suspect]
     Dosage: 100 MG;QD

REACTIONS (2)
  - STEVENS-JOHNSON SYNDROME [None]
  - WHITE BLOOD CELL COUNT DECREASED [None]
